FAERS Safety Report 12143058 (Version 2)
Quarter: 2016Q2

REPORT INFORMATION
  Report Type: Report from Study
  Country: JP (occurrence: JP)
  Receive Date: 20160303
  Receipt Date: 20160520
  Transmission Date: 20160815
  Serious: No
  Sender: FDA-Public Use
  Company Number: JP-FRI-1000083075

PATIENT
  Age: 49 Year
  Sex: Female
  Weight: 44.8 kg

DRUGS (13)
  1. LOXOPROFEN SODIUM HYDRATE [Concomitant]
     Active Substance: LOXOPROFEN SODIUM DIHYDRATE
     Indication: RIB FRACTURE
     Route: 048
     Dates: end: 20140423
  2. MYDRIN P [Concomitant]
     Active Substance: PHENYLEPHRINE HYDROCHLORIDE\TROPICAMIDE
     Dosage: ADEQUATE DOSE
     Route: 031
     Dates: start: 20140717, end: 20140717
  3. SENNOSIDE A B CALCIUM [Concomitant]
     Route: 048
     Dates: start: 20140227
  4. MYDRIN P [Concomitant]
     Active Substance: PHENYLEPHRINE HYDROCHLORIDE\TROPICAMIDE
     Indication: MYDRIASIS
     Dosage: ADEQUATE DOSE
     Route: 031
     Dates: start: 20140424, end: 20140424
  5. ZOTEPINE [Concomitant]
     Active Substance: ZOTEPINE
     Indication: SCHIZOPHRENIA
     Route: 048
     Dates: start: 20140425, end: 20140508
  6. DISTIGMINE BROMIDE [Concomitant]
     Active Substance: DISTIGMINE BROMIDE
     Indication: DYSURIA
     Route: 048
     Dates: end: 20140220
  7. PHYSIO 35 INJECTION [Concomitant]
     Indication: GASTROENTERITIS
     Route: 042
     Dates: start: 20140201, end: 20140203
  8. FUROSEMIDE. [Concomitant]
     Active Substance: FUROSEMIDE
     Indication: DYSURIA
     Route: 048
     Dates: end: 20140220
  9. REBAMIPIDE [Concomitant]
     Active Substance: REBAMIPIDE
     Indication: GASTRITIS PROPHYLAXIS
     Route: 048
     Dates: end: 20140423
  10. SENNOSIDE A B CALCIUM [Concomitant]
     Indication: CONSTIPATION
     Route: 048
     Dates: end: 20140226
  11. ZOTEPINE [Concomitant]
     Active Substance: ZOTEPINE
     Route: 048
     Dates: start: 20140509
  12. SENNOSIDE A B CALCIUM [Concomitant]
     Indication: CONSTIPATION
     Route: 048
     Dates: start: 20140206, end: 20140206
  13. CARIPRAZINE [Suspect]
     Active Substance: CARIPRAZINE
     Indication: SCHIZOPHRENIA
     Dates: start: 20140131, end: 20140424

REACTIONS (1)
  - Cataract [Not Recovered/Not Resolved]

NARRATIVE: CASE EVENT DATE: 20140424
